FAERS Safety Report 13444762 (Version 2)
Quarter: 2017Q2

REPORT INFORMATION
  Report Type: Spontaneous
  Country: EG (occurrence: EG)
  Receive Date: 20170414
  Receipt Date: 20170526
  Transmission Date: 20170830
  Serious: Yes (Death, Other)
  Sender: FDA-Public Use
  Company Number: EG-JNJFOC-20170415334

PATIENT

DRUGS (2)
  1. SIMEPREVIR [Suspect]
     Active Substance: SIMEPREVIR
     Indication: HEPATITIS C
     Route: 048
  2. SOFOSBUVIR [Suspect]
     Active Substance: SOFOSBUVIR
     Indication: HEPATITIS C
     Route: 048

REACTIONS (7)
  - Drug ineffective [Unknown]
  - Hepatocellular carcinoma [Unknown]
  - Blood disorder [Unknown]
  - Myocardial ischaemia [Unknown]
  - Hepatic failure [Fatal]
  - Drug hypersensitivity [Unknown]
  - Hepatitis C [Unknown]
